FAERS Safety Report 11139293 (Version 1)
Quarter: 2015Q2

REPORT INFORMATION
  Report Type: Spontaneous
  Country: US (occurrence: None)
  Receive Date: 20150526
  Receipt Date: 20150526
  Transmission Date: 20150821
  Serious: No
  Sender: FDA-Public Use
  Company Number: None

PATIENT
  Sex: Male

DRUGS (1)
  1. CAPECITABINE. [Suspect]
     Active Substance: CAPECITABINE
     Indication: COLON CANCER
     Route: 048
     Dates: start: 20150124

REACTIONS (5)
  - Chills [None]
  - Decreased appetite [None]
  - Asthenia [None]
  - Feeling cold [None]
  - Skin discolouration [None]

NARRATIVE: CASE EVENT DATE: 20150410
